FAERS Safety Report 6232875-8 (Version None)
Quarter: 2009Q2

REPORT INFORMATION
  Report Type: 
  Country: None (occurrence: None)
  Receive Date: 20090617
  Receipt Date: 20090401
  Transmission Date: 20091009
  Serious: No
  Sender: FDA-Public Use
  Company Number: US-ASTRAZENECA-2009UW08303

PATIENT
  Age: 70 Year
  Sex: Female

DRUGS (3)
  1. FASLODEX [Suspect]
     Route: 030
  2. VITAMIN E [Concomitant]
  3. ZOMETA [Concomitant]

REACTIONS (4)
  - ARTHRALGIA [None]
  - MALAISE [None]
  - MYALGIA [None]
  - PAIN [None]
